FAERS Safety Report 10687447 (Version 4)
Quarter: 2015Q2

REPORT INFORMATION
  Report Type: Spontaneous
  Country: US (occurrence: US)
  Receive Date: 20150102
  Receipt Date: 20150429
  Transmission Date: 20150821
  Serious: Yes (Life-Threatening, Hospitalization)
  Sender: FDA-Public Use
  Company Number: US-BAYER-2014-190803

PATIENT
  Age: 22 Year
  Sex: Female
  Weight: 66 kg

DRUGS (1)
  1. MIRENA [Suspect]
     Active Substance: LEVONORGESTREL
     Indication: CONTRACEPTION
     Dosage: 20 MCG/24HR, CONT
     Route: 015
     Dates: start: 20111214, end: 20130205

REACTIONS (8)
  - Device breakage [None]
  - General physical health deterioration [None]
  - Uterine perforation [None]
  - Infection [None]
  - Complication of device removal [None]
  - Abdominal pain [None]
  - Device issue [None]
  - Injury [None]

NARRATIVE: CASE EVENT DATE: 201201
